FAERS Safety Report 7342420 (Version 3)
Quarter: 2018Q2

REPORT INFORMATION
  Report Type: Spontaneous
  Country: US (occurrence: US)
  Receive Date: 20100402
  Receipt Date: 20180410
  Transmission Date: 20180711
  Serious: Yes (Other)
  Sender: FDA-Public Use
  Company Number: US-ELI_LILLY_AND_COMPANY-US201003008229

PATIENT
  Age: 92 Year
  Sex: Female

DRUGS (17)
  1. HUMULIN 70/30 [Suspect]
     Active Substance: INSULIN HUMAN
     Dosage: 28 U, EACH MORNING
     Route: 065
  2. FEMARA [Concomitant]
     Active Substance: LETROZOLE
     Indication: PRODUCT USED FOR UNKNOWN INDICATION
     Dosage: 2.5 MG, UNK
  3. HUMULIN 70/30 [Suspect]
     Active Substance: INSULIN HUMAN
     Indication: TYPE 2 DIABETES MELLITUS
     Dosage: 24 U, EACH MORNING
     Route: 065
  4. HUMULIN 70/30 [Suspect]
     Active Substance: INSULIN HUMAN
     Dosage: 14 U, EACH EVENING
     Route: 065
  5. LIPITOR [Concomitant]
     Active Substance: ATORVASTATIN CALCIUM
     Indication: PRODUCT USED FOR UNKNOWN INDICATION
     Dosage: 10 MG, UNK
  6. LANOXIN [Concomitant]
     Active Substance: DIGOXIN
     Indication: PRODUCT USED FOR UNKNOWN INDICATION
  7. HUMULIN 70/30 [Suspect]
     Active Substance: INSULIN HUMAN
     Indication: TYPE 2 DIABETES MELLITUS
     Dosage: 24 U, EACH MORNING
     Route: 065
     Dates: start: 1977
  8. THYROXINE [Concomitant]
     Active Substance: LEVOTHYROXINE
     Indication: PRODUCT USED FOR UNKNOWN INDICATION
     Dosage: 75 D/F, UNK
  9. COUMADIN [Concomitant]
     Active Substance: WARFARIN SODIUM
     Indication: PRODUCT USED FOR UNKNOWN INDICATION
     Dosage: 2.5 MG, UNK
  10. HUMULIN 70/30 [Suspect]
     Active Substance: INSULIN HUMAN
     Dosage: 28 U, EACH MORNING
     Route: 058
  11. HUMULIN 70/30 [Suspect]
     Active Substance: INSULIN HUMAN
     Dosage: 12 U, EACH EVENING
     Route: 065
     Dates: start: 1977
  12. HUMALOG [Suspect]
     Active Substance: INSULIN LISPRO
     Indication: TYPE 2 DIABETES MELLITUS
     Dosage: UNK, PRN
     Route: 065
  13. AMARYL [Concomitant]
     Active Substance: GLIMEPIRIDE
     Indication: PRODUCT USED FOR UNKNOWN INDICATION
     Dosage: UNK, AS NEEDED
  14. HUMULIN 70/30 [Suspect]
     Active Substance: INSULIN HUMAN
     Dosage: 12 U, EACH EVENING
     Route: 065
  15. HUMULIN 70/30 [Suspect]
     Active Substance: INSULIN HUMAN
     Dosage: 18 TO 20 U, EACH EVENING
     Route: 058
  16. TOPROL XL [Concomitant]
     Active Substance: METOPROLOL SUCCINATE
     Indication: PRODUCT USED FOR UNKNOWN INDICATION
  17. DIOVAN [Concomitant]
     Active Substance: VALSARTAN
     Indication: PRODUCT USED FOR UNKNOWN INDICATION

REACTIONS (12)
  - Blood glucose increased [Recovered/Resolved]
  - Blood glucose increased [Unknown]
  - Blindness unilateral [Not Recovered/Not Resolved]
  - Visual impairment [Not Recovered/Not Resolved]
  - Breast cancer [Recovered/Resolved]
  - Blood glucose increased [Unknown]
  - Wrong drug administered [Unknown]
  - Cerebrovascular accident [Unknown]
  - Urinary tract infection [Unknown]
  - Maculopathy [Unknown]
  - Underdose [Unknown]
  - Incorrect dose administered [Unknown]

NARRATIVE: CASE EVENT DATE: 2006
